FAERS Safety Report 17674775 (Version 1)
Quarter: 2020Q2

REPORT INFORMATION
  Report Type: Spontaneous
  Country: US (occurrence: US)
  Receive Date: 20200415
  Receipt Date: 20200415
  Transmission Date: 20200714
  Serious: No
  Sender: FDA-Public Use
  Company Number: None

PATIENT
  Age: 56 Year
  Sex: Male

DRUGS (1)
  1. VIGABATRIN  500MG ACTAVIS PHARMA [Suspect]
     Active Substance: VIGABATRIN
     Indication: EPILEPSY
     Route: 048
     Dates: start: 20200211

REACTIONS (6)
  - Seizure [None]
  - Headache [None]
  - Memory impairment [None]
  - Therapeutic product effect incomplete [None]
  - Aphasia [None]
  - Product substitution issue [None]

NARRATIVE: CASE EVENT DATE: 202002
